FAERS Safety Report 5518513-8 (Version None)
Quarter: 2007Q4

REPORT INFORMATION
  Report Type: 
  Country: None (occurrence: None)
  Receive Date: 20071115
  Receipt Date: 20071109
  Transmission Date: 20080405
  Serious: Yes (Hospitalization, Other)
  Sender: FDA-Public Use
  Company Number: GR-BRISTOL-MYERS SQUIBB COMPANY-13978010

PATIENT
  Sex: Male

DRUGS (1)
  1. COAPROVEL [Suspect]
     Dosage: 1 DOSAGE FORM: 150/12.5MG; PATIENT UNDER COAPROVEL TREATMENT FOR 3.5 YEARS

REACTIONS (2)
  - PROSTATE CANCER [None]
  - URINARY RETENTION [None]
